FAERS Safety Report 6087928-4 (Version None)
Quarter: 2009Q1

REPORT INFORMATION
  Report Type: 
  Country: None (occurrence: None)
  Receive Date: 20090218
  Receipt Date: 20090218
  Transmission Date: 20090719
  Serious: Yes (Other)
  Sender: FDA-Public Use
  Company Number: None

PATIENT
  Age: 65 Year
  Sex: Female
  Weight: 79.8331 kg

DRUGS (1)
  1. ZAROXOLYN [Suspect]
     Dosage: 1 TAB QD PO
     Route: 048

REACTIONS (2)
  - PRURITUS [None]
  - URTICARIA [None]
